FAERS Safety Report 23682459 (Version 2)
Quarter: 2024Q2

REPORT INFORMATION
  Report Type: Spontaneous
  Country: US (occurrence: US)
  Receive Date: 20240328
  Receipt Date: 20240603
  Transmission Date: 20240715
  Serious: Yes (Hospitalization, Other)
  Sender: FDA-Public Use
  Company Number: US-BRISTOL-MYERS SQUIBB COMPANY-2024-048720

PATIENT
  Age: 80 Year
  Sex: Female
  Weight: 83 kg

DRUGS (9)
  1. ELIQUIS [Suspect]
     Active Substance: APIXABAN
     Indication: Atrial fibrillation
     Route: 048
     Dates: start: 20211212, end: 20240212
  2. OZEMPIC [Suspect]
     Active Substance: SEMAGLUTIDE
     Indication: Type 2 diabetes mellitus
     Dosage: 0.25/0.5 MG
     Route: 058
     Dates: start: 20231214
  3. OZEMPIC [Suspect]
     Active Substance: SEMAGLUTIDE
     Route: 058
  4. OZEMPIC [Suspect]
     Active Substance: SEMAGLUTIDE
     Route: 058
     Dates: end: 2024
  5. BENICAR [Concomitant]
     Active Substance: OLMESARTAN MEDOXOMIL
     Indication: Hypertension
  6. AMLODIPINE [Concomitant]
     Active Substance: AMLODIPINE BESYLATE
     Indication: Hypertension
  7. CARVEDILOL [Concomitant]
     Active Substance: CARVEDILOL
     Indication: Hypertension
  8. ZETIA [Concomitant]
     Active Substance: EZETIMIBE
     Indication: Lipids increased
  9. FENOFIBRATE [Concomitant]
     Active Substance: FENOFIBRATE
     Indication: Lipids increased

REACTIONS (6)
  - Gastric haemorrhage [Recovered/Resolved]
  - Dizziness [Recovered/Resolved]
  - Cough [Recovered/Resolved]
  - Gastritis erosive [Unknown]
  - Melaena [Unknown]
  - Haemoglobin decreased [Unknown]

NARRATIVE: CASE EVENT DATE: 20240125
